FAERS Safety Report 8717783 (Version 2)
Quarter: 2012Q4

REPORT INFORMATION
  Report Type: 
  Country: JP (occurrence: JP)
  Receive Date: 20120810
  Receipt Date: 20120830
  Transmission Date: 20130627
  Serious: Yes (Death)
  Sender: FDA-Public Use
  Company Number: JP-VIIV HEALTHCARE LIMITED-B0821513A

PATIENT
  Age: 6 None
  Sex: Male

DRUGS (4)
  1. CELSENTRI [Suspect]
     Indication: HIV INFECTION
     Route: 048
     Dates: start: 201205, end: 201207
  2. TRUVADA [Concomitant]
     Indication: HIV INFECTION
  3. PREZISTA [Concomitant]
     Indication: HIV INFECTION
  4. RITONAVIR [Concomitant]
     Indication: HIV INFECTION

REACTIONS (1)
  - Death [Fatal]
